FAERS Safety Report 5401944-4 (Version None)
Quarter: 2007Q3

REPORT INFORMATION
  Report Type: 
  Country: None (occurrence: None)
  Receive Date: 20070726
  Receipt Date: 20070621
  Transmission Date: 20080115
  Serious: Yes (Life-Threatening, Hospitalization)
  Sender: FDA-Public Use
  Company Number: 6035329

PATIENT
  Age: 21 Year
  Sex: Female

DRUGS (3)
  1. CITALOPRAM HYDROBROMIDE [Suspect]
     Indication: DRUG USE FOR UNKNOWN INDICATION
     Dosage: 1600 MG (40 MG, 40 IN 1 TOTAL) ORAL
     Route: 048
  2. CODEINE PHOSPHATE AND ACETAMINOPHEN [Suspect]
     Indication: DRUG USE FOR UNKNOWN INDICATION
     Dosage: (1) ORAL
     Route: 048
  3. EFFEXOR [Suspect]
     Indication: DRUG USE FOR UNKNOWN INDICATION
     Dosage: 38 MG (38 MG, 1 IN 1 D) ORAL
     Route: 048

REACTIONS (11)
  - BLOOD CREATINE PHOSPHOKINASE INCREASED [None]
  - ELECTROCARDIOGRAM QRS COMPLEX PROLONGED [None]
  - ELECTROCARDIOGRAM QT PROLONGED [None]
  - GRAND MAL CONVULSION [None]
  - INTENTIONAL OVERDOSE [None]
  - INTENTIONAL SELF-INJURY [None]
  - MULTIPLE DRUG OVERDOSE INTENTIONAL [None]
  - PYREXIA [None]
  - SINUS TACHYCARDIA [None]
  - SKIN LACERATION [None]
  - WHITE BLOOD CELL COUNT INCREASED [None]
